FAERS Safety Report 23830597 (Version 1)
Quarter: 2024Q2

REPORT INFORMATION
  Report Type: Spontaneous
  Country: US (occurrence: US)
  Receive Date: 20240508
  Receipt Date: 20240508
  Transmission Date: 20240716
  Serious: Yes (Other)
  Sender: FDA-Public Use
  Company Number: None

PATIENT
  Age: 20 Year
  Sex: Male

DRUGS (3)
  1. DOXYCYCLINE HYCLATE [Suspect]
     Active Substance: DOXYCYCLINE HYCLATE
     Dosage: UNK
  2. TETRACYCLINE HYDROCHLORIDE [Suspect]
     Active Substance: TETRACYCLINE HYDROCHLORIDE
     Dosage: UNK
  3. FINASTERIDE [Suspect]
     Active Substance: FINASTERIDE
     Indication: Alopecia
     Dosage: 1 MG
     Route: 048
     Dates: start: 20030310, end: 20070223

REACTIONS (20)
  - Anxiety disorder [Recovering/Resolving]
  - Blindness [Not Recovered/Not Resolved]
  - Blood oestrogen increased [Unknown]
  - CSF pressure increased [Recovering/Resolving]
  - Colour blindness [Not Recovered/Not Resolved]
  - Cortisol increased [Unknown]
  - Depression [Unknown]
  - Empty sella syndrome [Recovering/Resolving]
  - Fatigue [Recovering/Resolving]
  - Hemianopia heteronymous [Unknown]
  - Hyperhidrosis [Unknown]
  - Idiopathic intracranial hypertension [Recovering/Resolving]
  - Ligament sprain [Unknown]
  - Loss of visual contrast sensitivity [Not Recovered/Not Resolved]
  - Memory impairment [Recovering/Resolving]
  - Reading disorder [Not Recovered/Not Resolved]
  - Tethered oral tissue [Recovering/Resolving]
  - Tinea pedis [Unknown]
  - Tinnitus [Not Recovered/Not Resolved]
  - Tremor [Not Recovered/Not Resolved]

NARRATIVE: CASE EVENT DATE: 20030101
